FAERS Safety Report 23486777 (Version 1)
Quarter: 2024Q1

REPORT INFORMATION
  Report Type: Spontaneous
  Country: CA (occurrence: CA)
  Receive Date: 20240206
  Receipt Date: 20240206
  Transmission Date: 20240409
  Serious: Yes (Other)
  Sender: FDA-Public Use
  Company Number: CA-PFIZER INC-202400033874

PATIENT
  Age: 74 Year
  Sex: Male

DRUGS (3)
  1. BEVACIZUMAB [Suspect]
     Active Substance: BEVACIZUMAB
     Indication: Mesothelioma
     Dosage: 15 MG/KG, EVERY 3 WEEKS
  2. IPILIMUMAB [Suspect]
     Active Substance: IPILIMUMAB
     Dosage: 1 MG/KG, EVERY 6 WEEKS
  3. NIVOLUMAB [Suspect]
     Active Substance: NIVOLUMAB
     Dosage: 4.5 MG/KG, EVERY 3 WEEKS

REACTIONS (5)
  - Adrenocorticotropic hormone deficiency [Unknown]
  - Cortisol decreased [Unknown]
  - Neoplasm progression [Unknown]
  - Drug ineffective for unapproved indication [Unknown]
  - Off label use [Unknown]
